FAERS Safety Report 19639458 (Version 3)
Quarter: 2021Q3

REPORT INFORMATION
  Report Type: Report from Study
  Country: CN (occurrence: CN)
  Receive Date: 20210730
  Receipt Date: 20210817
  Transmission Date: 20211014
  Serious: Yes (Hospitalization)
  Sender: FDA-Public Use
  Company Number: CN-KARYOPHARM-2021KPT000983

PATIENT
  Age: 45 Year
  Sex: Female

DRUGS (13)
  1. CARBOPLATIN. [Suspect]
     Active Substance: CARBOPLATIN
     Indication: PERIPHERAL T-CELL LYMPHOMA UNSPECIFIED
     Dosage: 0.525 G (D2)
     Route: 042
     Dates: start: 20210518, end: 20210518
  2. ETOPOSIDE. [Suspect]
     Active Substance: ETOPOSIDE
     Dosage: 0.11 G (D1 ? D3)
     Route: 042
     Dates: start: 20210608, end: 20210610
  3. IFOSFAMIDE. [Suspect]
     Active Substance: IFOSFAMIDE
     Indication: PERIPHERAL T-CELL LYMPHOMA UNSPECIFIED
     Dosage: 1.9 G (D1 ? D3)
     Route: 042
     Dates: start: 20210517, end: 20210517
  4. ETOPOSIDE. [Suspect]
     Active Substance: ETOPOSIDE
     Indication: PERIPHERAL T-CELL LYMPHOMA UNSPECIFIED
     Dosage: 0.11 G (D1 ? D3)
     Route: 042
     Dates: start: 20210517, end: 20210519
  5. CARBOPLATIN. [Suspect]
     Active Substance: CARBOPLATIN
     Dosage: 0.525 G (D2)
     Route: 042
     Dates: start: 20210609, end: 20210609
  6. SELINEXOR [Suspect]
     Active Substance: SELINEXOR
     Dosage: 60 MG
     Route: 065
     Dates: start: 20210608, end: 20210608
  7. CARBOPLATIN. [Suspect]
     Active Substance: CARBOPLATIN
     Dosage: 0.525 G (D2)
     Route: 042
     Dates: start: 20210630, end: 20210630
  8. IFOSFAMIDE. [Suspect]
     Active Substance: IFOSFAMIDE
     Dosage: 1.9 G (D1 ? D3)
     Route: 042
     Dates: start: 20210629, end: 20210701
  9. SELINEXOR [Suspect]
     Active Substance: SELINEXOR
     Indication: PERIPHERAL T-CELL LYMPHOMA UNSPECIFIED
     Dosage: 60 MG
     Route: 065
     Dates: start: 20210517, end: 20210517
  10. ETOPOSIDE. [Suspect]
     Active Substance: ETOPOSIDE
     Dosage: 0.11 G (D1 ? D3)
     Route: 042
     Dates: start: 20210629, end: 20210701
  11. IFOSFAMIDE. [Suspect]
     Active Substance: IFOSFAMIDE
     Dosage: 1.9 G (D1 ? D3)
     Route: 042
     Dates: start: 20210608, end: 20210610
  12. SELINEXOR [Suspect]
     Active Substance: SELINEXOR
     Dosage: 60 MG
     Route: 065
     Dates: start: 20210713, end: 20210713
  13. SELINEXOR [Suspect]
     Active Substance: SELINEXOR
     Dosage: 60 MG, WEEKLY
     Route: 065
     Dates: start: 20210726

REACTIONS (1)
  - Anaemia [Recovering/Resolving]

NARRATIVE: CASE EVENT DATE: 20210720
